FAERS Safety Report 8542214-5 (Version None)
Quarter: 2012Q3

REPORT INFORMATION
  Report Type: 
  Country: None (occurrence: None)
  Receive Date: 20120726
  Receipt Date: 20111011
  Transmission Date: 20120928
  Serious: No
  Sender: FDA-Public Use
  Company Number: US-ASTRAZENECA-2011SE61132

PATIENT
  Age: 69 Year
  Sex: Female
  Weight: 73.5 kg

DRUGS (1)
  1. SEROQUEL [Suspect]
     Indication: INSOMNIA
     Route: 048

REACTIONS (10)
  - INSOMNIA [None]
  - MATERNAL EXPOSURE DURING PREGNANCY [None]
  - ASTHENIA [None]
  - DIZZINESS [None]
  - DRUG DOSE OMISSION [None]
  - DELUSION OF GRANDEUR [None]
  - DRY MOUTH [None]
  - DYSPHONIA [None]
  - LARYNGITIS [None]
  - OFF LABEL USE [None]
